FAERS Safety Report 15362856 (Version 4)
Quarter: 2019Q1

REPORT INFORMATION
  Report Type: Report from Study
  Country: FR (occurrence: FR)
  Receive Date: 20180907
  Receipt Date: 20190104
  Transmission Date: 20190417
  Serious: Yes (Hospitalization, Other)
  Sender: FDA-Public Use
  Company Number: FR-MYLANLABS-2018M1066046

PATIENT
  Age: 56 Year
  Sex: Male

DRUGS (38)
  1. TEICOPLANIN [Suspect]
     Active Substance: TEICOPLANIN
     Indication: LIVER ABSCESS
     Dosage: 1416 MILLIGRAM, QD
     Route: 042
     Dates: start: 20171106, end: 20171106
  2. TEICOPLANIN [Suspect]
     Active Substance: TEICOPLANIN
     Dosage: 1400 MILLIGRAM, QD
     Route: 042
     Dates: start: 20171109, end: 20171115
  3. PANTOPRAZOLE [Concomitant]
     Active Substance: PANTOPRAZOLE
     Indication: PRODUCT USED FOR UNKNOWN INDICATION
     Dosage: UNK
     Route: 065
  4. TRIMEBUTINE [Concomitant]
     Active Substance: TRIMEBUTINE
     Indication: PRODUCT USED FOR UNKNOWN INDICATION
     Dosage: UNK
     Route: 065
     Dates: start: 20171006, end: 20171012
  5. LINEZOLID. [Concomitant]
     Active Substance: LINEZOLID
     Indication: PRODUCT USED FOR UNKNOWN INDICATION
     Dosage: UNK
     Route: 065
     Dates: start: 20171006, end: 20171011
  6. AMBISOME [Suspect]
     Active Substance: AMPHOTERICIN B
     Indication: PRODUCT USED FOR UNKNOWN INDICATION
     Dosage: UNK
     Route: 065
     Dates: start: 20171110, end: 20171122
  7. LANTUS [Concomitant]
     Active Substance: INSULIN GLARGINE
     Indication: PRODUCT USED FOR UNKNOWN INDICATION
     Dosage: UNK
     Route: 065
  8. NEFOPAM [Concomitant]
     Active Substance: NEFOPAM
     Indication: PRODUCT USED FOR UNKNOWN INDICATION
     Dosage: UNK
     Route: 065
     Dates: start: 20171006, end: 20171012
  9. MEROPENEM. [Concomitant]
     Active Substance: MEROPENEM
     Indication: PRODUCT USED FOR UNKNOWN INDICATION
     Dosage: UNK
     Route: 065
     Dates: start: 20171124, end: 20171128
  10. TRIATEC                            /00885601/ [Concomitant]
     Active Substance: RAMIPRIL
     Dosage: UNK
     Route: 065
     Dates: start: 20171020
  11. NICARDIPINE [Concomitant]
     Active Substance: NICARDIPINE
     Dosage: UNK
     Route: 065
     Dates: start: 20171017, end: 20171020
  12. VANCOMYCIN [Suspect]
     Active Substance: VANCOMYCIN
     Indication: PRODUCT USED FOR UNKNOWN INDICATION
     Dosage: UNK
     Route: 065
     Dates: start: 20171011, end: 20171019
  13. METRONIDAZOLE. [Concomitant]
     Active Substance: METRONIDAZOLE
     Indication: PRODUCT USED FOR UNKNOWN INDICATION
     Dosage: UNK
     Route: 065
  14. URAPIDIL [Concomitant]
     Active Substance: URAPIDIL
     Indication: PRODUCT USED FOR UNKNOWN INDICATION
     Dosage: UNK
     Route: 065
     Dates: start: 20171019, end: 20171024
  15. DAPTOMYCIN. [Concomitant]
     Active Substance: DAPTOMYCIN
     Indication: PRODUCT USED FOR UNKNOWN INDICATION
     Dosage: UNK
     Route: 065
     Dates: start: 20171124, end: 20171125
  16. METFORMINE                         /00082701/ [Concomitant]
     Active Substance: METFORMIN HYDROCHLORIDE
     Dosage: UNK
     Route: 065
     Dates: start: 20171110, end: 20171211
  17. TEICOPLANIN [Suspect]
     Active Substance: TEICOPLANIN
     Dosage: 2 DOSAGE FORM, QD, (DOSE: 1416 MG AND 1400 MG)
     Route: 042
     Dates: start: 20171107, end: 20171107
  18. CALCIPARINE [Concomitant]
     Active Substance: HEPARIN CALCIUM
     Indication: PRODUCT USED FOR UNKNOWN INDICATION
     Dosage: UNK
     Route: 065
     Dates: start: 20171006, end: 20171007
  19. ZOPICLONE [Concomitant]
     Active Substance: ZOPICLONE
     Indication: PRODUCT USED FOR UNKNOWN INDICATION
     Dosage: UNK
     Route: 065
     Dates: start: 20171017, end: 20171023
  20. SITAGLIPTINE [Concomitant]
     Active Substance: SITAGLIPTIN
     Dosage: UNK
     Route: 065
     Dates: start: 20171110, end: 20171111
  21. TEICOPLANIN [Suspect]
     Active Substance: TEICOPLANIN
     Indication: PERITONEAL DISORDER
     Dosage: 1416 MILLIGRAM, QD
     Route: 042
     Dates: start: 20171106, end: 20171106
  22. TAZOCILLINE [Suspect]
     Active Substance: PIPERACILLIN SODIUM\TAZOBACTAM SODIUM
     Indication: PRODUCT USED FOR UNKNOWN INDICATION
     Dosage: UNK
     Route: 065
     Dates: start: 20171006
  23. TAZOCILLINE [Suspect]
     Active Substance: PIPERACILLIN SODIUM\TAZOBACTAM SODIUM
     Dosage: UNK
     Route: 065
     Dates: start: 20171004, end: 20171007
  24. CEFEPIME [Concomitant]
     Active Substance: CEFEPIME HYDROCHLORIDE
     Indication: PRODUCT USED FOR UNKNOWN INDICATION
     Dosage: UNK
     Route: 065
     Dates: start: 20171007, end: 20171014
  25. ENOXAPARIN [Concomitant]
     Active Substance: ENOXAPARIN
     Indication: PRODUCT USED FOR UNKNOWN INDICATION
     Dosage: UNK
     Route: 065
     Dates: start: 20171008
  26. TEICOPLANIN [Suspect]
     Active Substance: TEICOPLANIN
     Dosage: 1400 MILLIGRAM, QD
     Route: 042
     Dates: start: 20171109, end: 20171115
  27. METRONIDAZOLE. [Suspect]
     Active Substance: METRONIDAZOLE
     Indication: PRODUCT USED FOR UNKNOWN INDICATION
     Dosage: UNK
     Route: 065
     Dates: start: 20171023, end: 20171030
  28. METRONIDAZOLE. [Concomitant]
     Active Substance: METRONIDAZOLE
     Dosage: UNK
     Route: 065
  29. CEFEPIME [Concomitant]
     Active Substance: CEFEPIME HYDROCHLORIDE
     Dosage: UNK
     Route: 065
     Dates: start: 20171128, end: 20171211
  30. NOREPINEPHRINE. [Concomitant]
     Active Substance: NOREPINEPHRINE
     Indication: PRODUCT USED FOR UNKNOWN INDICATION
     Dosage: UNK
     Route: 065
     Dates: start: 20171124, end: 20171126
  31. NICARDIPINE [Concomitant]
     Active Substance: NICARDIPINE
     Dosage: UNK
     Route: 065
     Dates: start: 20171008, end: 20171010
  32. TEICOPLANIN [Suspect]
     Active Substance: TEICOPLANIN
     Dosage: 2 DOSAGE FORM, QD, ( DOSE: 1416 MG AND 1400 MG)
     Route: 042
     Dates: start: 20171107, end: 20171107
  33. TEICOPLANIN [Suspect]
     Active Substance: TEICOPLANIN
     Dosage: 2800 MILLIGRAM, QD
     Route: 042
     Dates: start: 20171108, end: 20171108
  34. TEICOPLANIN [Suspect]
     Active Substance: TEICOPLANIN
     Dosage: 2800 MILLIGRAM, QD
     Route: 042
     Dates: start: 20171108, end: 20171108
  35. TEICOPLANIN [Suspect]
     Active Substance: TEICOPLANIN
     Dosage: 1400 MILLIGRAM, BID
     Route: 042
     Dates: start: 20171108, end: 20171108
  36. CEFOTAXIME [Suspect]
     Active Substance: CEFOTAXIME SODIUM
     Indication: PRODUCT USED FOR UNKNOWN INDICATION
     Dosage: UNK
     Route: 065
     Dates: start: 20171014, end: 20171030
  37. METRONIDAZOLE. [Suspect]
     Active Substance: METRONIDAZOLE
     Dosage: UNK
     Route: 065
     Dates: start: 20171007, end: 20171017
  38. TRIATEC                            /00116401/ [Concomitant]
     Active Substance: ACETAMINOPHEN\CODEINE PHOSPHATE
     Indication: PRODUCT USED FOR UNKNOWN INDICATION
     Dosage: UNK
     Route: 065
     Dates: start: 20171020

REACTIONS (6)
  - Intra-abdominal fluid collection [Recovered/Resolved]
  - Respiratory gas exchange disorder [Recovered/Resolved]
  - Anaemia [Recovered/Resolved]
  - Systemic candida [Recovered/Resolved]
  - Renal failure [Recovered/Resolved]
  - Oedema [Recovered/Resolved]

NARRATIVE: CASE EVENT DATE: 20171107
